FAERS Safety Report 4727392-8 (Version None)
Quarter: 2005Q3

REPORT INFORMATION
  Report Type: 
  Country: None (occurrence: None)
  Receive Date: 20050726
  Receipt Date: 20050714
  Transmission Date: 20060218
  Serious: Yes (Hospitalization)
  Sender: FDA-Public Use
  Company Number: 200511415BWH

PATIENT
  Age: 79 Year
  Sex: Female
  Weight: 81.1031 kg

DRUGS (12)
  1. SORAFENIB OR PLACEBO (UNCODEABLE ^INVESTIGATIONAL DRUG^) [Suspect]
     Dosage: 200 MG, BID, ORAL
     Route: 048
     Dates: start: 20050713
  2. DACARBAZINE [Suspect]
     Dosage: 1000 MG/M2, ONCE, INTRAVENOUS
     Route: 042
     Dates: start: 20050713
  3. ANZEMET [Concomitant]
  4. ATIVAN [Concomitant]
  5. COMPAZINE [Concomitant]
  6. ZOFRAN [Concomitant]
  7. ZESTRIL [Concomitant]
  8. FOLIC ACID [Concomitant]
  9. CENTRUM [Concomitant]
  10. GLUCOSAMINE [Concomitant]
  11. FLAX SEED OIL [Concomitant]
  12. TYLENOL (CAPLET) [Concomitant]

REACTIONS (3)
  - BLOOD SODIUM DECREASED [None]
  - NAUSEA [None]
  - SYNCOPE VASOVAGAL [None]
